FAERS Safety Report 7825460-5 (Version None)
Quarter: 2011Q4

REPORT INFORMATION
  Report Type: 
  Country: None (occurrence: None)
  Receive Date: 20111019
  Receipt Date: 20111011
  Transmission Date: 20120403
  Serious: Yes (Hospitalization, Other)
  Sender: FDA-Public Use
  Company Number: US-CELGENEUS-163-21880-11092754

PATIENT
  Sex: Female

DRUGS (4)
  1. PAMIDRONATE DISODIUM [Concomitant]
     Route: 065
  2. REVLIMID [Suspect]
     Indication: MULTIPLE MYELOMA
     Dosage: 10 MILLIGRAM
     Route: 048
     Dates: start: 20110601
  3. VELCADE [Concomitant]
     Route: 065
  4. DEXAMETHASONE [Concomitant]
     Route: 065

REACTIONS (1)
  - PATHOLOGICAL FRACTURE [None]
